FAERS Safety Report 24907790 (Version 1)
Quarter: 2025Q1

REPORT INFORMATION
  Report Type: Spontaneous
  Country: US (occurrence: US)
  Receive Date: 20250131
  Receipt Date: 20250131
  Transmission Date: 20250409
  Serious: No
  Sender: ROCHE
  Company Number: US-ROCHE-3579230

PATIENT
  Age: 26 Year
  Sex: Female

DRUGS (1)
  1. OCREVUS [Suspect]
     Active Substance: OCRELIZUMAB
     Indication: Product used for unknown indication
     Route: 065

REACTIONS (8)
  - Maternal exposure before pregnancy [Unknown]
  - Hypogammaglobulinaemia [Unknown]
  - Secondary thrombocytosis [Unknown]
  - Asthma [Unknown]
  - Depression [Unknown]
  - Weight increased [Unknown]
  - Gestational hypertension [Unknown]
  - Blood immunoglobulin G decreased [Unknown]

NARRATIVE: CASE EVENT DATE: 20230414
